FAERS Safety Report 7767974-2 (Version None)
Quarter: 2011Q3

REPORT INFORMATION
  Report Type: 
  Country: None (occurrence: None)
  Receive Date: 20110922
  Receipt Date: 20100914
  Transmission Date: 20111222
  Serious: Yes (Other)
  Sender: FDA-Public Use
  Company Number: US-ASTRAZENECA-2008UW28877

PATIENT
  Age: 48 Year
  Sex: Male
  Weight: 93.4 kg

DRUGS (4)
  1. SEROQUEL [Suspect]
     Indication: SLEEP DISORDER
     Route: 048
     Dates: start: 19991201, end: 20061001
  2. SEROQUEL [Suspect]
     Indication: DEPRESSION
     Route: 048
     Dates: start: 19991201, end: 20061001
  3. SEROQUEL [Suspect]
     Dosage: 20-50 MG
     Route: 048
     Dates: start: 19990101, end: 20060101
  4. SEROQUEL [Suspect]
     Dosage: 20-50 MG
     Route: 048
     Dates: start: 19990101, end: 20060101

REACTIONS (8)
  - TYPE 2 DIABETES MELLITUS [None]
  - BLOOD CHOLESTEROL INCREASED [None]
  - NECK PAIN [None]
  - BACK PAIN [None]
  - HYPERLIPIDAEMIA [None]
  - DIABETIC COMA [None]
  - INSOMNIA [None]
  - BACK INJURY [None]
